FAERS Safety Report 5481689-5 (Version None)
Quarter: 2007Q3

REPORT INFORMATION
  Report Type: 
  Country: None (occurrence: None)
  Receive Date: 20070913
  Receipt Date: 20060907
  Transmission Date: 20080115
  Serious: Yes (Other)
  Sender: FDA-Public Use
  Company Number: PHEH2006US11434

PATIENT
  Age: 76 Year
  Sex: Female

DRUGS (1)
  1. DIOVAN [Suspect]
     Indication: HYPERTENSION
     Dosage: 160 MG, QD, ORAL
     Route: 048
     Dates: start: 20060301

REACTIONS (3)
  - FLATULENCE [None]
  - HICCUPS [None]
  - HYPOTENSION [None]
